FAERS Safety Report 4263368-5 (Version None)
Quarter: 2004Q1

REPORT INFORMATION
  Report Type: 
  Country: None (occurrence: None)
  Receive Date: 20040105
  Receipt Date: 20031023
  Transmission Date: 20041129
  Serious: Yes (Other)
  Sender: FDA-Public Use
  Company Number: WAES 0310USA02730

PATIENT
  Age: 71 Year
  Sex: Male
  Weight: 125 kg

DRUGS (5)
  1. ASPIRIN [Concomitant]
     Route: 048
     Dates: start: 19950101
  2. ATENOLOL [Concomitant]
     Route: 048
     Dates: start: 20000801
  3. LESCOL [Concomitant]
     Dates: start: 19950101
  4. VIOXX [Suspect]
     Route: 048
     Dates: start: 20010926, end: 20011002
  5. VIOXX [Suspect]
     Route: 048
     Dates: start: 20010926, end: 20011002

REACTIONS (3)
  - CARDIAC FAILURE CONGESTIVE [None]
  - PULMONARY OEDEMA [None]
  - WEIGHT INCREASED [None]
